FAERS Safety Report 5479991-6 (Version None)
Quarter: 2007Q4

REPORT INFORMATION
  Report Type: 
  Country: None (occurrence: None)
  Receive Date: 20071008
  Receipt Date: 20070926
  Transmission Date: 20080405
  Serious: Yes (Hospitalization, Other)
  Sender: FDA-Public Use
  Company Number: DE-PFIZER INC-2007046350

PATIENT
  Sex: Female
  Weight: 75 kg

DRUGS (6)
  1. SUTENT [Suspect]
     Indication: METASTATIC RENAL CELL CARCINOMA
     Dosage: DAILY DOSE:50MG
     Route: 048
     Dates: start: 20070426, end: 20070512
  2. HYDROCHLOROTHIAZIDE [Suspect]
     Indication: HYPERTENSION
     Dosage: DAILY DOSE:25MG
     Route: 048
     Dates: start: 20070301, end: 20070101
  3. RAMIPRIL [Suspect]
     Indication: HYPERTENSION
     Dosage: DAILY DOSE:25MG
     Route: 048
     Dates: start: 20070301, end: 20070512
  4. ACE INHIBITOR NOS [Concomitant]
  5. BAYOTENSIN [Concomitant]
     Dates: start: 20070403, end: 20070512
  6. NORVASC [Concomitant]
     Route: 048

REACTIONS (17)
  - APHASIA [None]
  - ASTHENIA [None]
  - BLOOD BILIRUBIN INCREASED [None]
  - BLOOD CREATINE PHOSPHOKINASE INCREASED [None]
  - BLOOD CREATININE INCREASED [None]
  - CHOLESTASIS [None]
  - CONFUSIONAL STATE [None]
  - DEHYDRATION [None]
  - DEPRESSED LEVEL OF CONSCIOUSNESS [None]
  - FEBRILE NEUTROPENIA [None]
  - HYPERTENSION [None]
  - HYPONATRAEMIA [None]
  - LIVER FUNCTION TEST ABNORMAL [None]
  - OEDEMA [None]
  - PULMONARY CONGESTION [None]
  - STAPHYLOCOCCAL INFECTION [None]
  - THROMBOCYTOPENIA [None]
